FAERS Safety Report 9915901 (Version 2)
Quarter: 2014Q1

REPORT INFORMATION
  Report Type: Spontaneous
  Country: SE (occurrence: SE)
  Receive Date: 20140221
  Receipt Date: 20140221
  Transmission Date: 20141002
  Serious: Yes (Other)
  Sender: FDA-Public Use
  Company Number: SE-AMGEN-SWESP2013072767

PATIENT
  Age: 75 Year
  Sex: Female

DRUGS (2)
  1. PROLIA [Suspect]
     Indication: OSTEOPOROSIS
     Dosage: 60 MG, Q6MO
     Route: 065
     Dates: start: 20111021
  2. INFLUENZA VACCINE [Concomitant]

REACTIONS (13)
  - Pain [Recovered/Resolved]
  - Oral pain [Recovered/Resolved]
  - Oral mucosal blistering [Recovered/Resolved]
  - Pyrexia [Recovered/Resolved]
  - Dysstasia [Recovered/Resolved]
  - Glossodynia [Recovered/Resolved]
  - Myalgia [Unknown]
  - Arthralgia [Not Recovered/Not Resolved]
  - Face oedema [Recovered/Resolved]
  - Eczema [Not Recovered/Not Resolved]
  - Rash [Recovered/Resolved]
  - Pain in extremity [Not Recovered/Not Resolved]
  - Urticaria [Unknown]
